FAERS Safety Report 11139849 (Version 1)
Quarter: 2015Q2

REPORT INFORMATION
  Report Type: Spontaneous
  Country: US (occurrence: None)
  Receive Date: 20150526
  Receipt Date: 20150526
  Transmission Date: 20150821
  Serious: No
  Sender: FDA-Public Use
  Company Number: None

PATIENT
  Age: 70 Year
  Sex: Female

DRUGS (15)
  1. PROPRANOLOL (INDERAL) [Concomitant]
  2. ALBUTEROL (PROAIR HFA) [Concomitant]
  3. VITAMIN D3 [Concomitant]
     Active Substance: CHOLECALCIFEROL
  4. POTASSIUM CHLORIDE. [Concomitant]
     Active Substance: POTASSIUM CHLORIDE
  5. ASPIRIN. [Concomitant]
     Active Substance: ASPIRIN
  6. MOMETASONE-FORMOTEROL (DULERA) [Concomitant]
  7. LASIX [Concomitant]
     Active Substance: FUROSEMIDE
  8. MULTIVITAMIN [Concomitant]
     Active Substance: VITAMINS
  9. AMPYRA [Suspect]
     Active Substance: DALFAMPRIDINE
     Indication: MULTIPLE SCLEROSIS
     Route: 048
     Dates: start: 201109
  10. LIPITOR [Concomitant]
     Active Substance: ATORVASTATIN CALCIUM
  11. CLONAZEPAM (KLONOPIN) [Concomitant]
  12. RITUXIMAB (RITUXAN) [Concomitant]
  13. TIOTROPIUM (SPIRIVA WITH HANDIHALER) [Concomitant]
  14. CHOLECALCIFEROL [Concomitant]
     Active Substance: CHOLECALCIFEROL
  15. AMLODIPINE (NORVASC) [Concomitant]

REACTIONS (8)
  - Laboratory test abnormal [None]
  - Lymphocyte count decreased [None]
  - Blood chloride decreased [None]
  - Neutrophil count increased [None]
  - Red blood cell count increased [None]
  - Glycosylated haemoglobin increased [None]
  - Carbon dioxide increased [None]
  - Mean cell haemoglobin decreased [None]

NARRATIVE: CASE EVENT DATE: 20150202
